FAERS Safety Report 24792410 (Version 1)
Quarter: 2024Q4

REPORT INFORMATION
  Report Type: Spontaneous
  Country: GB (occurrence: GB)
  Receive Date: 20241231
  Receipt Date: 20241231
  Transmission Date: 20250115
  Serious: Yes (Other)
  Sender: TEVA
  Company Number: GB-MHRA-EMIS-1867-8b49ad7a-2f0f-4b3c-8f12-1768643b50e7

PATIENT
  Age: 56 Year
  Sex: Male
  Weight: 120 kg

DRUGS (4)
  1. ATORVASTATIN [Suspect]
     Active Substance: ATORVASTATIN
     Indication: Blood cholesterol increased
     Dosage: PRIMARY PREVENTION
     Route: 065
     Dates: start: 20240424, end: 20241216
  2. OMEPRAZOLE [Concomitant]
     Active Substance: OMEPRAZOLE
     Indication: Product used for unknown indication
     Dosage: WHEN TAKING IBUPROFEN
     Dates: start: 20241023, end: 20241205
  3. MOMETASONE [Concomitant]
     Active Substance: MOMETASONE
     Indication: Product used for unknown indication
     Dosage: TWO SPRAYS TO BE USED IN EACH NOSTRIL TWICE A DAY
     Route: 045
     Dates: start: 20241007, end: 20241109
  4. IBUPROFEN [Concomitant]
     Active Substance: IBUPROFEN
     Indication: Product used for unknown indication
     Dosage: AS A SINGLE DOSE, PREFERABLY AFTER FOOD
     Dates: start: 20241023, end: 20241121

REACTIONS (1)
  - Jaundice cholestatic [Recovered/Resolved]

NARRATIVE: CASE EVENT DATE: 20240801
